FAERS Safety Report 6328620-8 (Version None)
Quarter: 2009Q3

REPORT INFORMATION
  Report Type: 
  Country: None (occurrence: None)
  Receive Date: 20090824
  Receipt Date: 20090824
  Transmission Date: 20100115
  Serious: Yes (Hospitalization)
  Sender: FDA-Public Use
  Company Number: None

PATIENT
  Sex: Male
  Weight: 76.9 kg

DRUGS (6)
  1. ONCASPAR [Suspect]
     Dosage: 5508 IU
     Dates: end: 20090817
  2. VINCRISTINE SULFATE [Suspect]
     Dosage: 6 MG
     Dates: end: 20090817
  3. CYCLOPHOSPHAMIDE [Suspect]
     Dosage: 3760 MG
     Dates: end: 20090803
  4. CYTARABINE [Suspect]
     Dosage: 156 MG
     Dates: end: 20090813
  5. MERCAPTOPURINE [Suspect]
     Dosage: 3000 MG
     Dates: end: 20090816
  6. METHOTREXATE [Suspect]
     Dosage: 60 MG
     Dates: end: 20090727

REACTIONS (8)
  - ANAPHYLACTIC REACTION [None]
  - BLOOD PRESSURE IMMEASURABLE [None]
  - CARDIO-RESPIRATORY ARREST [None]
  - DEPRESSED LEVEL OF CONSCIOUSNESS [None]
  - FALL [None]
  - HYPERGLYCAEMIA [None]
  - PULSE ABSENT [None]
  - VOMITING [None]
